FAERS Safety Report 17241756 (Version 1)
Quarter: 2020Q1

REPORT INFORMATION
  Report Type: Report from Study
  Country: CN (occurrence: CN)
  Receive Date: 20200107
  Receipt Date: 20200107
  Transmission Date: 20200409
  Serious: Yes (Other)
  Sender: FDA-Public Use
  Company Number: CN-ROCHE-2514265

PATIENT

DRUGS (6)
  1. EPIRUBICIN [Suspect]
     Active Substance: EPIRUBICIN
     Indication: B-CELL LYMPHOMA RECURRENT
     Dosage: ON DAY 2,EVERY 21 DAYS FOR 6 CYCLES.
     Route: 042
  2. LENALIDOMIDE [Suspect]
     Active Substance: LENALIDOMIDE
     Indication: B-CELL LYMPHOMA RECURRENT
     Dosage: ON WEEKS 1-3 FOR 6 CYCLES (4 WEEKS AS A CYCLE)
     Route: 048
  3. RITUXIMAB. [Suspect]
     Active Substance: RITUXIMAB
     Indication: B-CELL LYMPHOMA RECURRENT
     Dosage: 10 ML/100MG, ON DAY 1, EVERY 21 DAYS FOR 6 CYCLES.
     Route: 042
  4. PREDNISONE. [Suspect]
     Active Substance: PREDNISONE
     Indication: B-CELL LYMPHOMA RECURRENT
     Dosage: 1 ML/25 MG, ON DAYS 1-5,EVERY 21 DAYS FOR 6 CYCLES.
     Route: 042
  5. CYCLOPHOSPHAMIDE. [Suspect]
     Active Substance: CYCLOPHOSPHAMIDE
     Indication: B-CELL LYMPHOMA RECURRENT
     Dosage: ON DAY 2, EVERY 21 DAYS FOR 6 CYCLES.
     Route: 042
  6. VINCRISTINE [Suspect]
     Active Substance: VINCRISTINE
     Indication: B-CELL LYMPHOMA RECURRENT
     Dosage: ON DAY 2,EVERY 21 DAYS FOR 6 CYCLES.
     Route: 042

REACTIONS (3)
  - Neutropenia [Unknown]
  - Thrombosis [Unknown]
  - Thrombocytopenia [Unknown]
